FAERS Safety Report 4395469-5 (Version None)
Quarter: 2004Q3

REPORT INFORMATION
  Report Type: 
  Country: None (occurrence: None)
  Receive Date: 20040712
  Receipt Date: 20040712
  Transmission Date: 20050211
  Serious: No
  Sender: FDA-Public Use
  Company Number: None

PATIENT
  Sex: Female
  Weight: 81.6475 kg

DRUGS (2)
  1. CELEXA [Suspect]
     Indication: DEPRESSION
     Dosage: 20 MG DAY
     Dates: start: 20040601, end: 20040709
  2. SEROQUEL [Suspect]
     Indication: ANXIETY
     Dosage: 25 MG 4-6 HR PRN
     Dates: start: 20040601, end: 20040709

REACTIONS (4)
  - AKATHISIA [None]
  - ANXIETY [None]
  - FORMICATION [None]
  - SUICIDAL IDEATION [None]
